FAERS Safety Report 8378468-8 (Version None)
Quarter: 2012Q2

REPORT INFORMATION
  Report Type: 
  Country: None (occurrence: None)
  Receive Date: 20120522
  Receipt Date: 20110802
  Transmission Date: 20120825
  Serious: No
  Sender: FDA-Public Use
  Company Number: US-ASTRAZENECA-2011SE46609

PATIENT

DRUGS (24)
  1. FUROSEMIDE [Concomitant]
     Indication: CARDIAC FAILURE CONGESTIVE
     Dates: start: 20110501
  2. CALCIUM [Concomitant]
     Route: 048
     Dates: start: 20090101
  3. TYLENOL [Concomitant]
     Indication: ARTHRALGIA
     Route: 048
     Dates: start: 20100101
  4. PRILOSEC [Suspect]
     Indication: GASTROOESOPHAGEAL REFLUX DISEASE
     Route: 048
     Dates: start: 20080101
  5. FOSEMAX [Concomitant]
     Indication: OSTEOPOROSIS
     Dates: start: 20100401
  6. LEUCOVORIN CALCIUM [Concomitant]
     Indication: VITAMIN SUPPLEMENTATION
     Dates: start: 20080101
  7. MULTI-VITAMINS [Concomitant]
     Route: 048
     Dates: start: 20090101
  8. CARBIDOPAL LEVODOPA [Concomitant]
     Dosage: 25/100 MG 1-2 AS REQUIRED
     Route: 048
     Dates: start: 20091101
  9. RANITIDINE [Concomitant]
     Indication: GASTROOESOPHAGEAL REFLUX DISEASE
     Route: 048
     Dates: start: 20080101
  10. VENLAFAXINE HCL EXTENDED-RELEASE [Concomitant]
     Indication: DEPRESSION
     Route: 048
     Dates: start: 20110101
  11. METHOTREXATE [Concomitant]
     Indication: RHEUMATOID ARTHRITIS
     Dates: start: 20080101
  12. ROPINIROLE [Concomitant]
     Indication: RESTLESS LEGS SYNDROME
     Dates: start: 20090101
  13. LISINOPRIL [Concomitant]
     Indication: CARDIAC FAILURE CONGESTIVE
     Route: 048
     Dates: start: 20110501
  14. IRON [Concomitant]
     Route: 048
     Dates: start: 20100101
  15. TRAMADOL HYDROCHLORIDE [Concomitant]
     Indication: ARTHRITIS
     Route: 048
     Dates: start: 20090101
  16. CARVEDILOL [Concomitant]
     Indication: CARDIAC FAILURE CONGESTIVE
     Route: 048
     Dates: start: 20110501
  17. ORENCIA [Concomitant]
     Indication: RHEUMATOID ARTHRITIS
     Dosage: EVERY 4 WEEK
     Dates: start: 20090101
  18. D-3 [Concomitant]
     Route: 048
     Dates: start: 20100101
  19. CRANBERRY EXTRACT [Concomitant]
     Route: 048
     Dates: start: 20100101
  20. CARBIDOPAL LEVODOPA [Concomitant]
     Indication: RESTLESS LEGS SYNDROME
     Dosage: 25/100 MG 1-2 DAILY
     Route: 048
     Dates: start: 20091101
  21. ASPIRIN [Concomitant]
     Route: 048
     Dates: start: 20080101
  22. CYTOMEL [Concomitant]
     Indication: THYROID DISORDER
     Route: 048
     Dates: start: 20080101
  23. ZOCOR [Concomitant]
     Indication: HYPERCHOLESTEROLAEMIA
     Route: 048
     Dates: start: 20060101
  24. FISH OIL [Concomitant]
     Route: 048
     Dates: start: 20090101

REACTIONS (4)
  - DEPRESSION [None]
  - OSTEOPOROSIS [None]
  - CARDIAC FAILURE CONGESTIVE [None]
  - RHEUMATOID ARTHRITIS [None]
